FAERS Safety Report 21186791 (Version 1)
Quarter: 2022Q3

REPORT INFORMATION
  Report Type: Spontaneous
  Country: US (occurrence: US)
  Receive Date: 20220808
  Receipt Date: 20220808
  Transmission Date: 20221026
  Serious: No
  Sender: FDA-Public Use
  Company Number: US-PFIZER INC-202201038755

PATIENT
  Age: 76 Year
  Sex: Female

DRUGS (1)
  1. DROPERIDOL [Suspect]
     Active Substance: DROPERIDOL
     Indication: Anxiety
     Dosage: UNK

REACTIONS (4)
  - Drug hypersensitivity [Unknown]
  - Agitation [Unknown]
  - Restlessness [Unknown]
  - Off label use [Unknown]
